FAERS Safety Report 19367824 (Version 1)
Quarter: 2021Q2

REPORT INFORMATION
  Report Type: Spontaneous
  Country: US (occurrence: US)
  Receive Date: 20210603
  Receipt Date: 20210603
  Transmission Date: 20210717
  Serious: No
  Sender: FDA-Public Use
  Company Number: US-TARO-2020TAR01279

PATIENT

DRUGS (1)
  1. CLOTRIMAZOLE VAGINAL CREAM USP 2% 3 DAY [Suspect]
     Active Substance: CLOTRIMAZOLE
     Indication: PRODUCT USED FOR UNKNOWN INDICATION
     Dosage: CONTAINER SIZE: 21 GRAMS, STORAGE CONDITIONS: ROOM TEMPERATURE
     Route: 065

REACTIONS (1)
  - Drug ineffective [Unknown]
